FAERS Safety Report 19048009 (Version 1)
Quarter: 2021Q1

REPORT INFORMATION
  Report Type: Spontaneous
  Country: US (occurrence: US)
  Receive Date: 20210323
  Receipt Date: 20210323
  Transmission Date: 20210420
  Serious: Yes (Other)
  Sender: FDA-Public Use
  Company Number: US-ALLERGAN-2106966US

PATIENT
  Sex: Male

DRUGS (5)
  1. REFRESH CLASSIC [Suspect]
     Active Substance: POLYVINYL ALCOHOL\POVIDONE
     Indication: MACULAR DEGENERATION
     Dosage: 1/2 VIAL IN BOTH EYES, 3?4 TIMES PER DAY, AS NEEDED
     Route: 047
     Dates: start: 202102, end: 202102
  2. LATANOPROST. [Concomitant]
     Active Substance: LATANOPROST
     Indication: GLAUCOMA
     Dosage: 2 GTT, BID
     Route: 047
  3. REFRESH CLASSIC [Suspect]
     Active Substance: POLYVINYL ALCOHOL\POVIDONE
     Indication: DRY EYE
     Dosage: 1/2 VIAL IN BOTH EYES, 3?4 TIMES PER DAY, AS NEEDED
     Route: 047
  4. TIMOLOL. [Concomitant]
     Active Substance: TIMOLOL
     Indication: GLAUCOMA
     Dosage: 2 GTT, BID
     Route: 047
  5. BRIMONIDINE [Concomitant]
     Active Substance: BRIMONIDINE TARTRATE
     Indication: GLAUCOMA
     Dosage: 1 GTT, BID
     Route: 047

REACTIONS (5)
  - Off label use [Unknown]
  - Accidental exposure to product [Unknown]
  - Expired product administered [Unknown]
  - Cataract [Recovered/Resolved]
  - Eye pain [Not Recovered/Not Resolved]

NARRATIVE: CASE EVENT DATE: 202102
